FAERS Safety Report 21698065 (Version 1)
Quarter: 2022Q4

REPORT INFORMATION
  Report Type: Spontaneous
  Country: US (occurrence: US)
  Receive Date: 20221208
  Receipt Date: 20221208
  Transmission Date: 20230113
  Serious: No
  Sender: FDA-Public Use
  Company Number: US-EyePoint Pharmaceuticals, Inc.-US-EYP-22-00023

PATIENT
  Age: 66 Year
  Sex: Female

DRUGS (1)
  1. YUTIQ [Suspect]
     Active Substance: FLUOCINOLONE ACETONIDE
     Indication: Retinal oedema
     Dosage: RIGHT EYE/OD; SUBRETINAL SPACE
     Route: 031
     Dates: start: 20220211, end: 20220211

REACTIONS (3)
  - Device dislocation [Not Recovered/Not Resolved]
  - Device placement issue [Unknown]
  - Drug ineffective [Unknown]

NARRATIVE: CASE EVENT DATE: 20220211
